FAERS Safety Report 6017948-7 (Version None)
Quarter: 2008Q4

REPORT INFORMATION
  Report Type: 
  Country: None (occurrence: None)
  Receive Date: 20081223
  Receipt Date: 20081212
  Transmission Date: 20090506
  Serious: Yes (Hospitalization)
  Sender: FDA-Public Use
  Company Number: FR-JNJFOC-20081205768

PATIENT
  Sex: Female

DRUGS (16)
  1. TOPALGIC [Suspect]
     Indication: PAIN
     Route: 042
  2. LOVENOX [Suspect]
     Indication: THROMBOSIS PROPHYLAXIS
     Route: 058
  3. SPASFON [Suspect]
     Indication: PAIN
     Route: 042
  4. PRIMPERAN TAB [Suspect]
     Indication: DRUG USE FOR UNKNOWN INDICATION
     Route: 042
  5. EUPANTOL [Suspect]
     Indication: GASTROOESOPHAGEAL REFLUX DISEASE
     Route: 048
  6. VITAMIN K TAB [Suspect]
     Indication: HAEMORRHAGE PROPHYLAXIS
     Route: 042
  7. OLICLINOMEL [Suspect]
     Indication: PARENTERAL NUTRITION
     Route: 042
  8. ACUPAN [Suspect]
     Indication: PAIN
     Route: 042
  9. APROVEL [Concomitant]
  10. NITROGLYCERIN [Concomitant]
  11. ALPRAZOLAM [Concomitant]
  12. DERMOVAL [Concomitant]
  13. METEOSPASMYL [Concomitant]
  14. TETRYZOLINE HYDROCHLORIDE [Concomitant]
  15. INFLUENZA VACCINATION [Concomitant]
  16. RHINOFLUIMUCIL [Concomitant]

REACTIONS (2)
  - RASH MACULAR [None]
  - RASH PUSTULAR [None]
